FAERS Safety Report 25748067 (Version 1)
Quarter: 2025Q3

REPORT INFORMATION
  Report Type: Spontaneous
  Country: US (occurrence: US)
  Receive Date: 20250901
  Receipt Date: 20250901
  Transmission Date: 20251020
  Serious: Yes (Other)
  Sender: AMGEN
  Company Number: US-AMGEN-USASP2025172234

PATIENT
  Age: 41 Year
  Sex: Male

DRUGS (1)
  1. KRYSTEXXA [Suspect]
     Active Substance: PEGLOTICASE
     Indication: Gout
     Dosage: UNK UNK, Q2WK
     Route: 040

REACTIONS (1)
  - Psychiatric symptom [Unknown]
